FAERS Safety Report 8306614-0 (Version None)
Quarter: 2012Q2

REPORT INFORMATION
  Report Type: 
  Country: None (occurrence: None)
  Receive Date: 20120424
  Receipt Date: 20120416
  Transmission Date: 20120825
  Serious: Yes (Other)
  Sender: FDA-Public Use
  Company Number: US-BAYER-201041436NA

PATIENT
  Age: 31 Year
  Sex: Female
  Weight: 81.633 kg

DRUGS (6)
  1. ABILIT [Concomitant]
  2. LAMICTAL [Concomitant]
  3. LUVOX [Concomitant]
  4. SEROQUEL [Concomitant]
  5. YAZ [Suspect]
     Indication: PRODUCT USED FOR UNKNOWN INDICATION
     Dosage: UNK
     Dates: start: 20090401
  6. ATIVAN [Concomitant]

REACTIONS (3)
  - CHEST PAIN [None]
  - PULMONARY EMBOLISM [None]
  - DEEP VEIN THROMBOSIS [None]
